FAERS Safety Report 17099198 (Version 1)
Quarter: 2019Q4

REPORT INFORMATION
  Report Type: Spontaneous
  Country: US (occurrence: US)
  Receive Date: 20191201
  Receipt Date: 20191201
  Transmission Date: 20200122
  Serious: No
  Sender: FDA-Public Use
  Company Number: None

PATIENT
  Age: 56 Year
  Sex: Female
  Weight: 86.4 kg

DRUGS (8)
  1. BETAMETHASONE. [Concomitant]
     Active Substance: BETAMETHASONE
  2. MICONAZOLE. [Concomitant]
     Active Substance: MICONAZOLE
  3. CVS PINWORM TREATMENT [Suspect]
     Active Substance: PYRANTEL PAMOATE
     Indication: PRURITUS
     Dosage: ?          OTHER STRENGTH:4 TEASPOONS;QUANTITY:1 TEASPOON(S);OTHER FREQUENCY:ONCE;?
     Route: 048
     Dates: start: 20191124, end: 20191125
  4. FLAX OIL [Concomitant]
  5. KETOCONAZOLE. [Concomitant]
     Active Substance: KETOCONAZOLE
  6. VITAMIN C [Concomitant]
     Active Substance: ASCORBIC ACID
  7. VITAMIN B [Concomitant]
     Active Substance: VITAMIN B
  8. FLUCONAZOLE. [Concomitant]
     Active Substance: FLUCONAZOLE

REACTIONS (3)
  - Vulvovaginal mycotic infection [None]
  - Candida infection [None]
  - Anal fungal infection [None]

NARRATIVE: CASE EVENT DATE: 20191127
